FAERS Safety Report 22026752 (Version 3)
Quarter: 2023Q2

REPORT INFORMATION
  Report Type: Report from Study
  Country: US (occurrence: US)
  Receive Date: 20230223
  Receipt Date: 20230623
  Transmission Date: 20230722
  Serious: Yes (Hospitalization)
  Sender: FDA-Public Use
  Company Number: US-002147023-NVSC2023US038735

PATIENT
  Sex: Male

DRUGS (1)
  1. ENTRESTO [Suspect]
     Active Substance: SACUBITRIL\VALSARTAN
     Indication: Product used for unknown indication
     Dosage: 1 DOSAGE FORM, BID (24/26 MG)
     Route: 048

REACTIONS (9)
  - Tremor [Unknown]
  - Hypoacusis [Unknown]
  - Vomiting [Unknown]
  - Dizziness [Unknown]
  - Visual impairment [Unknown]
  - Headache [Unknown]
  - Blood glucose abnormal [Unknown]
  - Fall [Unknown]
  - Road traffic accident [Unknown]
